FAERS Safety Report 13084050 (Version 4)
Quarter: 2017Q1

REPORT INFORMATION
  Report Type: Spontaneous
  Country: GB (occurrence: GB)
  Receive Date: 20170104
  Receipt Date: 20170125
  Transmission Date: 20170428
  Serious: Yes (Hospitalization, Other)
  Sender: FDA-Public Use
  Company Number: GB-MYLANLABS-2016M1058982

PATIENT

DRUGS (1)
  1. CLOZARIL [Suspect]
     Active Substance: CLOZAPINE
     Indication: SCHIZOPHRENIA
     Dosage: UNK
     Route: 048
     Dates: start: 20091118, end: 20161216

REACTIONS (7)
  - Vasculitis [Unknown]
  - Tachycardia [Unknown]
  - Ileus paralytic [Recovered/Resolved]
  - Intestinal obstruction [Unknown]
  - Inflammatory bowel disease [Recovered/Resolved]
  - Intestinal stenosis [Unknown]
  - Mental impairment [Unknown]

NARRATIVE: CASE EVENT DATE: 201612
